FAERS Safety Report 17349042 (Version 1)
Quarter: 2020Q1

REPORT INFORMATION
  Report Type: Report from Study
  Country: US (occurrence: US)
  Receive Date: 20200129
  Receipt Date: 20200129
  Transmission Date: 20200409
  Serious: No
  Sender: FDA-Public Use
  Company Number: US-EXELIXIS-CABO-19025037

PATIENT
  Age: 58 Year
  Sex: Female

DRUGS (3)
  1. CABOMETYX [Suspect]
     Active Substance: CABOZANTINIB S-MALATE
     Indication: RENAL CANCER
     Dosage: 60 MG, QD (10PM NO FOOD 2 HRS PRIOR AND 1 HR AFTER)
     Dates: start: 20190923
  2. CABOMETYX [Suspect]
     Active Substance: CABOZANTINIB S-MALATE
     Dosage: 60 MG, QD (10PM NO FOOD 2 HRS PRIOR AND 1 HR AFTER)
  3. CABOMETYX [Suspect]
     Active Substance: CABOZANTINIB S-MALATE
     Dosage: 60 MG, QD (10PM NO FOOD 2 HRS PRIOR AND 1 HR AFTER)

REACTIONS (6)
  - Weight decreased [Unknown]
  - Product dose omission [Unknown]
  - Diarrhoea [Unknown]
  - Decreased appetite [Unknown]
  - Flatulence [Unknown]
  - Influenza [Unknown]

NARRATIVE: CASE EVENT DATE: 201911
